FAERS Safety Report 17095109 (Version 1)
Quarter: 2019Q4

REPORT INFORMATION
  Report Type: Spontaneous
  Country: FR (occurrence: FR)
  Receive Date: 20191130
  Receipt Date: 20191130
  Transmission Date: 20200122
  Serious: Yes (Hospitalization)
  Sender: FDA-Public Use
  Company Number: FR-TEVA-2019-FR-1143068

PATIENT
  Age: 86 Year
  Sex: Male

DRUGS (8)
  1. TRAMADOL BASE [Suspect]
     Active Substance: TRAMADOL
     Indication: NECK PAIN
     Route: 048
     Dates: start: 20191001, end: 20191007
  2. IMOVANE [Concomitant]
     Active Substance: ZOPICLONE
     Route: 048
     Dates: end: 20191008
  3. ASPEGIC [Concomitant]
     Dosage: 100 MG
     Route: 048
     Dates: end: 20191008
  4. ESOMEPRAZOLE. [Concomitant]
     Active Substance: ESOMEPRAZOLE MAGNESIUM
     Indication: PROPHYLAXIS AGAINST GASTROINTESTINAL ULCER
     Dosage: 20 MG
     Route: 048
  5. XATRAL LP 10 MG, COMPRIME A LIBERATION PROLONGEE [Concomitant]
     Active Substance: ALFUZOSIN
     Dosage: 1 DOSAGE FORM
     Route: 048
  6. FUROSEMIDE. [Concomitant]
     Active Substance: FUROSEMIDE
     Indication: HYPERTENSION
     Dosage: 40 MG
     Route: 048
  7. SERESTA 50 MG, COMPRIME SECABLE [Concomitant]
     Active Substance: OXAZEPAM
     Route: 048
     Dates: end: 20191008
  8. ALLOPURINOL. [Concomitant]
     Active Substance: ALLOPURINOL
     Indication: HYPERURICAEMIA
     Dosage: 100 MG
     Route: 048
     Dates: end: 20191008

REACTIONS (4)
  - Urinary retention [Recovering/Resolving]
  - Hypoventilation [Recovered/Resolved]
  - Respiratory acidosis [Recovered/Resolved]
  - Postrenal failure [Recovered/Resolved]

NARRATIVE: CASE EVENT DATE: 20191007
